FAERS Safety Report 21838894 (Version 2)
Quarter: 2023Q1

REPORT INFORMATION
  Report Type: Report from Study
  Country: US (occurrence: US)
  Receive Date: 20230109
  Receipt Date: 20230224
  Transmission Date: 20230417
  Serious: Yes (Other)
  Sender: FDA-Public Use
  Company Number: US-ABBVIE-4261502

PATIENT
  Age: 59 Year
  Sex: Female
  Weight: 78.017 kg

DRUGS (9)
  1. HUMIRA [Suspect]
     Active Substance: ADALIMUMAB
     Indication: Rheumatoid arthritis
     Dosage: CITRATE FREE?STRENGTH: 40 MG
     Route: 058
     Dates: start: 20220609, end: 20221110
  2. HUMIRA [Suspect]
     Active Substance: ADALIMUMAB
     Dosage: CF?STRENGTH: 40 MG
     Route: 058
     Dates: start: 20230105, end: 20230105
  3. VITAMIN D [Concomitant]
     Active Substance: VITAMIN D NOS
     Indication: Vitamin supplementation
  4. CALCIUM [Concomitant]
     Active Substance: CALCIUM
     Indication: Mineral supplementation
  5. GABAPENTIN [Concomitant]
     Active Substance: GABAPENTIN
     Indication: Pain
  6. ARMOUR THYROID [Concomitant]
     Active Substance: THYROID, PORCINE
     Indication: Hypothyroidism
  7. OXYCODONE [Concomitant]
     Active Substance: OXYCODONE
     Indication: Pain
  8. WELLBUTRIN [Concomitant]
     Active Substance: BUPROPION HYDROCHLORIDE
     Indication: Depression
  9. VITAMIN C [Concomitant]
     Active Substance: ASCORBIC ACID
     Indication: Vitamin supplementation

REACTIONS (2)
  - Hip arthroplasty [Recovering/Resolving]
  - Inflammatory marker increased [Unknown]

NARRATIVE: CASE EVENT DATE: 20221201
